FAERS Safety Report 7632147-0 (Version None)
Quarter: 2011Q3

REPORT INFORMATION
  Report Type: 
  Country: None (occurrence: None)
  Receive Date: 20110725
  Receipt Date: 20110725
  Transmission Date: 20111222
  Serious: Yes (Disabling)
  Sender: FDA-Public Use
  Company Number: None

PATIENT
  Age: 41 Year
  Sex: Female
  Weight: 67.131 kg

DRUGS (1)
  1. REGLAN [Suspect]
     Indication: NAUSEA
     Dates: start: 20110724, end: 20110724

REACTIONS (9)
  - PRURITUS GENERALISED [None]
  - PANIC ATTACK [None]
  - HEADACHE [None]
  - RESTLESSNESS [None]
  - URTICARIA [None]
  - ABNORMAL BEHAVIOUR [None]
  - HEAT EXHAUSTION [None]
  - DYSPNOEA [None]
  - NAUSEA [None]
